FAERS Safety Report 9333662 (Version 1)
Quarter: 2013Q2

REPORT INFORMATION
  Report Type: Spontaneous
  Country: US (occurrence: US)
  Receive Date: 20130606
  Receipt Date: 20130606
  Transmission Date: 20140414
  Serious: No
  Sender: FDA-Public Use
  Company Number: US-AMGEN-USASP2012083870

PATIENT
  Age: 79 Year
  Sex: Female

DRUGS (7)
  1. PROLIA [Suspect]
     Indication: OSTEOPOROSIS
     Dosage: UNK
     Dates: start: 20121226
  2. ATENOLOL [Concomitant]
     Dosage: 50MG IN EVENING,25 MG IN MORNING
  3. HYDROCHLOROTHIAZIDE [Concomitant]
     Dosage: 12.5 MG, UNK
  4. VITAMIN C                          /00008001/ [Concomitant]
     Dosage: UNK
  5. VITAMIN D                          /00107901/ [Concomitant]
     Dosage: UNK
  6. CALCIUM [Concomitant]
     Dosage: UNK
  7. FISH OIL [Concomitant]
     Dosage: UNK

REACTIONS (4)
  - Headache [Recovered/Resolved]
  - Nausea [Recovered/Resolved]
  - Rash erythematous [Unknown]
  - Pain [Unknown]
